FAERS Safety Report 18625594 (Version 1)
Quarter: 2020Q4

REPORT INFORMATION
  Report Type: Spontaneous
  Country: JP (occurrence: JP)
  Receive Date: 20201216
  Receipt Date: 20201216
  Transmission Date: 20210114
  Serious: Yes (Other)
  Sender: FDA-Public Use
  Company Number: JP-ASTRAZENECA-2020SF65923

PATIENT
  Age: 78 Year
  Sex: Male
  Weight: 75 kg

DRUGS (28)
  1. OPDIVO [Suspect]
     Active Substance: NIVOLUMAB
     Indication: RENAL CANCER
     Dosage: 240.0MG ONCE/SINGLE ADMINISTRATION
     Route: 041
     Dates: start: 20200324, end: 20200324
  2. TENELIA [Concomitant]
     Active Substance: TENELIGLIPTIN
     Route: 048
  3. YERVOY [Suspect]
     Active Substance: IPILIMUMAB
     Indication: RENAL CANCER
     Dosage: 75.85MG ONCE/SINGLE ADMINISTRATION
     Route: 041
     Dates: start: 20200528
  4. CARVEDILOL. [Concomitant]
     Active Substance: CARVEDILOL
     Route: 048
  5. LIXIANA [Concomitant]
     Active Substance: EDOXABAN TOSYLATE
     Route: 048
  6. PIMOBENDAN [Concomitant]
     Active Substance: PIMOBENDAN
     Route: 048
  7. XYZAL [Concomitant]
     Active Substance: LEVOCETIRIZINE DIHYDROCHLORIDE
     Route: 048
     Dates: start: 20200416
  8. OPDIVO [Suspect]
     Active Substance: NIVOLUMAB
     Indication: RENAL CANCER
     Dosage: ONCE/SINGLE ADMINISTRATION
     Route: 041
     Dates: start: 20200714
  9. FEXOFENADINE HYDROCHLORIDE. [Concomitant]
     Active Substance: FEXOFENADINE HYDROCHLORIDE
     Route: 048
     Dates: start: 20200402
  10. OPDIVO [Suspect]
     Active Substance: NIVOLUMAB
     Indication: RENAL CANCER
     Dosage: ONCE/SINGLE ADMINISTRATION
     Route: 041
     Dates: start: 20200618
  11. YERVOY [Suspect]
     Active Substance: IPILIMUMAB
     Indication: RENAL CANCER
     Dosage: 75.85MG ONCE/SINGLE ADMINISTRATION
     Route: 041
     Dates: start: 20200324, end: 20200324
  12. ENALAPRIL MALEATE. [Concomitant]
     Active Substance: ENALAPRIL MALEATE
     Route: 048
  13. STIBRON [Concomitant]
     Dosage: DOSE UNKNOWN, TWO TIMES A DAY
     Route: 062
     Dates: start: 20200402
  14. CALONAL [Concomitant]
     Active Substance: ACETAMINOPHEN
     Route: 048
     Dates: start: 20200416
  15. FORXIGA [Suspect]
     Active Substance: DAPAGLIFLOZIN
     Indication: DIABETES MELLITUS
     Route: 048
  16. OPDIVO [Suspect]
     Active Substance: NIVOLUMAB
     Indication: RENAL CANCER
     Dosage: 240.0MG ONCE/SINGLE ADMINISTRATION
     Route: 041
     Dates: start: 20200528
  17. YERVOY [Suspect]
     Active Substance: IPILIMUMAB
     Indication: RENAL CANCER
     Dosage: ONCE/SINGLE ADMINISTRATION
     Route: 041
     Dates: start: 20200714
  18. FEBURIC [Concomitant]
     Active Substance: FEBUXOSTAT
     Route: 048
  19. ROSUVASTATIN. [Concomitant]
     Active Substance: ROSUVASTATIN
     Route: 048
  20. MAGMITT [Concomitant]
     Active Substance: MAGNESIUM OXIDE
     Route: 048
  21. RABEPRAZOLE NA [Concomitant]
     Active Substance: RABEPRAZOLE SODIUM
     Route: 048
  22. ANTEBATE [Concomitant]
     Active Substance: BETAMETHASONE DIPROPIONATE
     Dosage: DOSE UNKNOWN, TWO TIMES A DAY
     Route: 062
     Dates: start: 20200416
  23. YERVOY [Suspect]
     Active Substance: IPILIMUMAB
     Indication: RENAL CANCER
     Dosage: ONCE/SINGLE ADMINISTRATION
     Route: 041
     Dates: start: 20200618
  24. HUMALOG [Concomitant]
     Active Substance: INSULIN LISPRO
     Route: 065
     Dates: start: 20200416
  25. ROZEREM [Concomitant]
     Active Substance: RAMELTEON
     Route: 048
  26. TRAMAL [Concomitant]
     Active Substance: TRAMADOL
     Route: 048
     Dates: start: 20200416
  27. FUROSEMIDE. [Concomitant]
     Active Substance: FUROSEMIDE
     Route: 048
  28. SAMSCA [Concomitant]
     Active Substance: TOLVAPTAN
     Route: 048

REACTIONS (1)
  - Thyroiditis [Recovered/Resolved]

NARRATIVE: CASE EVENT DATE: 20200416
